FAERS Safety Report 4337390-4 (Version None)
Quarter: 2004Q2

REPORT INFORMATION
  Report Type: 
  Country: None (occurrence: None)
  Receive Date: 20040406
  Receipt Date: 20040130
  Transmission Date: 20050107
  Serious: No
  Sender: FDA-Public Use
  Company Number: 357824

PATIENT
  Sex: Male

DRUGS (1)
  1. FUZEON [Suspect]
     Indication: HIV INFECTION
     Dosage: 90 MG 2 PER DAY SUBCUTANEOUS
     Route: 058
     Dates: end: 20040130

REACTIONS (7)
  - INJECTION SITE ABSCESS [None]
  - INJECTION SITE ERYTHEMA [None]
  - INJECTION SITE NODULE [None]
  - INJECTION SITE PAIN [None]
  - INJECTION SITE PRURITUS [None]
  - LYMPHOMA [None]
  - MEDICATION ERROR [None]
